FAERS Safety Report 12794437 (Version 4)
Quarter: 2024Q1

REPORT INFORMATION
  Report Type: Spontaneous
  Country: US (occurrence: US)
  Receive Date: 20160929
  Receipt Date: 20240102
  Transmission Date: 20240410
  Serious: No
  Sender: FDA-Public Use
  Company Number: US-JNJFOC-20160907160

PATIENT
  Sex: Male

DRUGS (4)
  1. RISPERDAL [Suspect]
     Active Substance: RISPERIDONE
     Indication: Bipolar disorder
     Dosage: VARYING DOSES OF 0.5 MG, 1 MG, 1.5 MG AND 4 MG
     Route: 048
     Dates: start: 200707, end: 2015
  2. INVEGA [Suspect]
     Active Substance: PALIPERIDONE
     Indication: Bipolar disorder
     Route: 048
     Dates: start: 2010
  3. RISPERIDONE [Suspect]
     Active Substance: RISPERIDONE
     Indication: Product used for unknown indication
     Route: 048
  4. DEPAKOTE [Concomitant]
     Active Substance: DIVALPROEX SODIUM
     Indication: Product used for unknown indication
     Route: 065
     Dates: start: 2008, end: 2015

REACTIONS (6)
  - Gynaecomastia [Unknown]
  - Hyperglycaemia [Unknown]
  - Extrapyramidal disorder [Unknown]
  - Developmental delay [Unknown]
  - Dizziness [Unknown]
  - Tic [Recovered/Resolved]
